FAERS Safety Report 14977104 (Version 1)
Quarter: 2018Q2

REPORT INFORMATION
  Report Type: Spontaneous
  Country: FR (occurrence: FR)
  Receive Date: 20180606
  Receipt Date: 20180606
  Transmission Date: 20180711
  Serious: Yes (Hospitalization)
  Sender: FDA-Public Use
  Company Number: FR-TEVA-2018-FR-900406

PATIENT
  Age: 52 Year
  Sex: Female
  Weight: 66 kg

DRUGS (6)
  1. PREGABALIN. [Suspect]
     Active Substance: PREGABALIN
     Indication: MULTIPLE SCLEROSIS
     Dosage: 14 MILLIGRAM DAILY;
     Route: 048
     Dates: start: 2015
  2. CARBAMAZEPINE. [Suspect]
     Active Substance: CARBAMAZEPINE
     Indication: NEURALGIA
     Dosage: 450 MILLIGRAM DAILY;
     Route: 048
     Dates: start: 2009
  3. CYMBALTA [Suspect]
     Active Substance: DULOXETINE HYDROCHLORIDE
     Dosage: 90 MILLIGRAM DAILY;
     Route: 048
     Dates: start: 20180110
  4. BROMAZEPAM [Concomitant]
     Active Substance: BROMAZEPAM
     Dosage: 1/4 TABLET IF NEEDED
     Route: 048
     Dates: start: 20180110
  5. GABAPENTIN. [Suspect]
     Active Substance: GABAPENTIN
     Indication: TRIGEMINAL NEURALGIA
     Dosage: 1200 MILLIGRAM DAILY;
     Route: 048
     Dates: start: 2009
  6. NEBIVOLOL. [Suspect]
     Active Substance: NEBIVOLOL
     Indication: DEPRESSION
     Dosage: 90 MILLIGRAM DAILY;
     Route: 048
     Dates: start: 20180110

REACTIONS (2)
  - Pulmonary embolism [Recovering/Resolving]
  - Arterial thrombosis [Recovered/Resolved]

NARRATIVE: CASE EVENT DATE: 20180303
